FAERS Safety Report 5233666-7 (Version None)
Quarter: 2007Q1

REPORT INFORMATION
  Report Type: 
  Country: None (occurrence: None)
  Receive Date: 20070208
  Receipt Date: 20070129
  Transmission Date: 20070707
  Serious: Yes (Other)
  Sender: FDA-Public Use
  Company Number: 2007AP00689

PATIENT
  Age: 16891 Day
  Sex: Female
  Weight: 47 kg

DRUGS (7)
  1. ZOLADEX [Suspect]
     Indication: BREAST CANCER
     Route: 058
     Dates: start: 20060519, end: 20061228
  2. NOLVADEX [Suspect]
     Indication: BREAST CANCER
     Route: 048
     Dates: start: 20060519, end: 20070126
  3. DEPAS [Concomitant]
     Indication: INSOMNIA
     Route: 048
  4. AMOBAN [Concomitant]
     Indication: INSOMNIA
     Route: 048
  5. LENDORMIN [Concomitant]
     Indication: INSOMNIA
     Route: 048
  6. BROVARIN [Concomitant]
     Indication: INSOMNIA
     Route: 048
  7. HALCION [Concomitant]
     Indication: INSOMNIA
     Route: 048

REACTIONS (1)
  - CERVIX CARCINOMA [None]
